FAERS Safety Report 5391622-2 (Version None)
Quarter: 2007Q3

REPORT INFORMATION
  Report Type: 
  Country: None (occurrence: None)
  Receive Date: 20070717
  Receipt Date: 20070703
  Transmission Date: 20080115
  Serious: Yes (Other)
  Sender: FDA-Public Use
  Company Number: B0478644A

PATIENT
  Age: 35 Year
  Sex: Male

DRUGS (6)
  1. ABACAVIR SULFATE [Suspect]
     Indication: HIV INFECTION
  2. ZIDOVUDINE [Suspect]
     Indication: HIV INFECTION
  3. LAMIVUDINE [Suspect]
     Indication: HIV INFECTION
  4. EFAVIRENZ [Suspect]
     Indication: HIV INFECTION
  5. STAVUDINE [Suspect]
     Indication: HIV INFECTION
  6. DIDANOSINE [Suspect]
     Indication: HIV INFECTION

REACTIONS (13)
  - ANAEMIA [None]
  - DEPRESSION [None]
  - DRUG HYPERSENSITIVITY [None]
  - FATIGUE [None]
  - HEADACHE [None]
  - HEPATITIS CHOLESTATIC [None]
  - HEPATITIS TOXIC [None]
  - HIV WASTING SYNDROME [None]
  - HYPOAESTHESIA [None]
  - NAUSEA [None]
  - PANCREATITIS [None]
  - STEATORRHOEA [None]
  - TYPE 1 DIABETES MELLITUS [None]
